FAERS Safety Report 25945181 (Version 1)
Quarter: 2025Q4

REPORT INFORMATION
  Report Type: Spontaneous
  Country: US (occurrence: US)
  Receive Date: 20251021
  Receipt Date: 20251021
  Transmission Date: 20260118
  Serious: Yes (Hospitalization, Other)
  Sender: SANOFI AVENTIS
  Company Number: US-DialogSolutions-SAAVPROD-PI832213-C1

PATIENT
  Age: 16 Year
  Sex: Male

DRUGS (15)
  1. FLUDARABINE PHOSPHATE [Suspect]
     Active Substance: FLUDARABINE PHOSPHATE
     Indication: Congenital cardiovascular anomaly
     Dosage: UNK
  2. FLUDARABINE PHOSPHATE [Suspect]
     Active Substance: FLUDARABINE PHOSPHATE
     Indication: Paroxysmal nocturnal haemoglobinuria
  3. ANTI-THYMOCYTE GLOBULIN (RABBIT) NOS [Suspect]
     Active Substance: LAPINE T-LYMPHOCYTE IMMUNE GLOBULIN
     Indication: Congenital cardiovascular anomaly
     Dosage: UNK
  4. ANTI-THYMOCYTE GLOBULIN (RABBIT) NOS [Suspect]
     Active Substance: LAPINE T-LYMPHOCYTE IMMUNE GLOBULIN
     Indication: Paroxysmal nocturnal haemoglobinuria
  5. CYCLOPHOSPHAMIDE [Suspect]
     Active Substance: CYCLOPHOSPHAMIDE
     Indication: Congenital cardiovascular anomaly
     Dosage: UNK
  6. CYCLOPHOSPHAMIDE [Suspect]
     Active Substance: CYCLOPHOSPHAMIDE
     Indication: Paroxysmal nocturnal haemoglobinuria
  7. FUROSEMIDE [Concomitant]
     Active Substance: FUROSEMIDE
     Indication: Hypervolaemia
     Dosage: UNK
  8. FUROSEMIDE [Concomitant]
     Active Substance: FUROSEMIDE
     Indication: Prophylaxis
  9. ECULIZUMAB [Concomitant]
     Active Substance: ECULIZUMAB
     Indication: Thrombosis prophylaxis
     Dosage: UNK
  10. NITRIC OXIDE [Concomitant]
     Active Substance: NITRIC OXIDE
     Indication: Congenital cardiovascular anomaly
     Dosage: UNK
  11. BIVALIRUDIN [Concomitant]
     Active Substance: BIVALIRUDIN
     Indication: Congenital cardiovascular anomaly
     Dosage: UNK
  12. MILRINONE [Concomitant]
     Active Substance: MILRINONE
     Indication: Congenital cardiovascular anomaly
     Dosage: UNK
  13. CEFTAZIDIME [Concomitant]
     Active Substance: CEFTAZIDIME
     Indication: Antibiotic prophylaxis
     Dosage: UNK
  14. VANCOMYCIN [Concomitant]
     Active Substance: VANCOMYCIN
     Indication: Antibiotic prophylaxis
     Dosage: UNK
  15. CORTICOSTEROID NOS [Concomitant]
     Active Substance: CORTICOSTEROID NOS
     Indication: Congenital cardiovascular anomaly
     Dosage: UNK
     Route: 042

REACTIONS (3)
  - Febrile neutropenia [Unknown]
  - Off label use [Unknown]
  - Mucosal inflammation [Unknown]
